FAERS Safety Report 7944463-3 (Version None)
Quarter: 2011Q4

REPORT INFORMATION
  Report Type: 
  Country: None (occurrence: None)
  Receive Date: 20111122
  Receipt Date: 20110630
  Transmission Date: 20120403
  Serious: No
  Sender: FDA-Public Use
  Company Number: PHHY2011US59615

PATIENT
  Sex: Male

DRUGS (9)
  1. VITAMIN D [Concomitant]
  2. ASCORBIC ACID [Concomitant]
  3. FISH OIL (FISH OIL) [Concomitant]
  4. GILENYA [Suspect]
     Dosage: 0.5 MG, QD, ORAL
     Route: 048
  5. VITAMIN B12 [Concomitant]
  6. ASPIRIN [Concomitant]
  7. COQ10 (UBIDECARENONE) [Concomitant]
  8. ECHILNACEA (ECHINACEA ANGUSTIFOLIA) [Concomitant]
  9. VITAMIN B2 (RIBOFLAVIN) [Concomitant]

REACTIONS (1)
  - GAIT DISTURBANCE [None]
